FAERS Safety Report 8375978-4 (Version None)
Quarter: 2012Q2

REPORT INFORMATION
  Report Type: 
  Country: None (occurrence: None)
  Receive Date: 20120522
  Receipt Date: 20120515
  Transmission Date: 20120825
  Serious: Yes (Hospitalization, Other)
  Sender: FDA-Public Use
  Company Number: GB-SANOFI-AVENTIS-2012SA018545

PATIENT
  Age: 68 Year
  Sex: Male
  Weight: 58 kg

DRUGS (7)
  1. JEVTANA KIT [Suspect]
     Route: 042
     Dates: start: 20120314
  2. RANITIDINE [Concomitant]
     Indication: PREMEDICATION
     Route: 042
     Dates: start: 20120222
  3. CHLORPHENIRAMINE MALEATE [Concomitant]
     Indication: PREMEDICATION
     Route: 042
     Dates: start: 20120222
  4. DEXAMETHASONE [Concomitant]
     Route: 048
     Dates: end: 20120201
  5. PREDNISOLONE [Concomitant]
     Route: 048
     Dates: start: 20120222
  6. JEVTANA KIT [Suspect]
     Indication: PROSTATE CANCER
     Route: 042
     Dates: start: 20120222
  7. JEVTANA KIT [Suspect]
     Route: 042
     Dates: start: 20120404

REACTIONS (4)
  - PLEURAL EFFUSION [None]
  - DIARRHOEA [None]
  - NEUTROPENIC INFECTION [None]
  - VOMITING [None]
